FAERS Safety Report 11466942 (Version 2)
Quarter: 2015Q4

REPORT INFORMATION
  Report Type: Report from Study
  Country: US (occurrence: US)
  Receive Date: 20150908
  Receipt Date: 20151015
  Transmission Date: 20160304
  Serious: Yes (Hospitalization, Other)
  Sender: FDA-Public Use
  Company Number: US-ABBVIE-15P-163-1456564-00

PATIENT
  Age: 25 Year
  Sex: Male
  Weight: 59.02 kg

DRUGS (2)
  1. ENTYVIO [Suspect]
     Active Substance: VEDOLIZUMAB
     Indication: CROHN^S DISEASE
     Route: 065
     Dates: start: 20150323
  2. HUMIRA [Suspect]
     Active Substance: ADALIMUMAB
     Indication: CROHN^S DISEASE
     Route: 058
     Dates: start: 201310, end: 20150323

REACTIONS (9)
  - Gastrointestinal hypomotility [Recovered/Resolved]
  - Abdominal pain [Unknown]
  - Crohn^s disease [Recovered/Resolved]
  - Lower gastrointestinal haemorrhage [Unknown]
  - Intestinal obstruction [Unknown]
  - Lower gastrointestinal haemorrhage [Recovered/Resolved]
  - Gastrointestinal oedema [Recovered/Resolved]
  - Ileal ulcer [Unknown]
  - Drug ineffective [Not Recovered/Not Resolved]

NARRATIVE: CASE EVENT DATE: 201310
